FAERS Safety Report 19865882 (Version 1)
Quarter: 2021Q3

REPORT INFORMATION
  Report Type: Spontaneous
  Country: US (occurrence: US)
  Receive Date: 20210921
  Receipt Date: 20210921
  Transmission Date: 20211014
  Serious: Yes (Hospitalization)
  Sender: FDA-Public Use
  Company Number: None

PATIENT
  Age: 42 Year
  Sex: Male
  Weight: 117.1 kg

DRUGS (1)
  1. ASPIRIN. [Suspect]
     Active Substance: ASPIRIN
     Dates: end: 20210712

REACTIONS (9)
  - Myalgia [None]
  - Tremor [None]
  - Pyrexia [None]
  - Pain [None]
  - Cellulitis [None]
  - Bacteraemia [None]
  - Headache [None]
  - Chills [None]
  - Rash [None]

NARRATIVE: CASE EVENT DATE: 20210713
